FAERS Safety Report 8474344-0 (Version None)
Quarter: 2012Q2

REPORT INFORMATION
  Report Type: 
  Country: None (occurrence: None)
  Receive Date: 20120628
  Receipt Date: 20120619
  Transmission Date: 20120825
  Serious: Yes (Other)
  Sender: FDA-Public Use
  Company Number: GB-JNJFOC-20120518386

PATIENT
  Sex: Female

DRUGS (5)
  1. ENBREL [Concomitant]
     Route: 065
  2. PENTASA [Concomitant]
     Route: 065
  3. REMICADE [Suspect]
     Indication: PROCTITIS
     Route: 042
     Dates: start: 20100501, end: 20111212
  4. AZATHIOPRINE [Concomitant]
     Route: 065
  5. BALSALAZIDE DISODIUM [Concomitant]
     Dosage: 1111/GDS 4 TABLET
     Route: 065

REACTIONS (1)
  - LUPUS-LIKE SYNDROME [None]
